FAERS Safety Report 18156832 (Version 1)
Quarter: 2020Q3

REPORT INFORMATION
  Report Type: Spontaneous
  Country: US (occurrence: US)
  Receive Date: 20200817
  Receipt Date: 20200817
  Transmission Date: 20201103
  Serious: Yes (Other)
  Sender: FDA-Public Use
  Company Number: None

PATIENT
  Sex: Female

DRUGS (1)
  1. ENOXAPARIN SODIUM 40 MG .4 SOLUTION [Suspect]
     Active Substance: ENOXAPARIN SODIUM

REACTIONS (2)
  - Pregnancy [None]
  - Exposure during pregnancy [None]
